FAERS Safety Report 25980169 (Version 1)
Quarter: 2025Q4

REPORT INFORMATION
  Report Type: Spontaneous
  Country: GB (occurrence: GB)
  Receive Date: 20251030
  Receipt Date: 20251030
  Transmission Date: 20260118
  Serious: Yes (Other)
  Sender: GUERBET
  Company Number: None

PATIENT
  Age: 38 Year
  Sex: Female
  Weight: 76 kg

DRUGS (1)
  1. DOTAREM [Suspect]
     Active Substance: GADOTERATE MEGLUMINE
     Indication: Magnetic resonance imaging heart
     Route: 065
     Dates: start: 20251015, end: 20251015

REACTIONS (3)
  - Lip swelling [Recovering/Resolving]
  - Pruritus [Recovering/Resolving]
  - Erythema [Unknown]

NARRATIVE: CASE EVENT DATE: 20251015
